FAERS Safety Report 9914333 (Version 2)
Quarter: 2014Q2

REPORT INFORMATION
  Report Type: Spontaneous
  Country: GB (occurrence: None)
  Receive Date: 20140218
  Receipt Date: 20140430
  Transmission Date: 20141212
  Serious: Yes (Other)
  Sender: FDA-Public Use
  Company Number: AUR-APL-2014-01490

PATIENT
  Age: 56 Year
  Sex: Male

DRUGS (2)
  1. TERBINAFINE [Suspect]
     Indication: ONYCHOMYCOSIS
     Dosage: 250 MG (250 MG, 1 IN 1 D), ORAL
     Route: 048
     Dates: start: 20130703, end: 20131001
  2. SILDENAFIL (SILDENAFIL) [Concomitant]

REACTIONS (2)
  - Epilepsy [None]
  - Convulsion [None]
